FAERS Safety Report 16075197 (Version 1)
Quarter: 2019Q1

REPORT INFORMATION
  Report Type: Spontaneous
  Country: SE (occurrence: SE)
  Receive Date: 20190315
  Receipt Date: 20190315
  Transmission Date: 20190418
  Serious: Yes (Other)
  Sender: FDA-Public Use
  Company Number: SE-AMGEN-SWESP2018118481

PATIENT
  Age: 62 Year
  Sex: Female

DRUGS (9)
  1. TRAMADOL. [Concomitant]
     Active Substance: TRAMADOL
     Dosage: UNK UNK, AS NEEDED
     Dates: start: 201710
  2. ALENDRONAT [Concomitant]
     Active Substance: ALENDRONATE SODIUM
     Dosage: 70 MILLIGRAM, QWK
     Dates: start: 20180820, end: 20181001
  3. KALCIPOS D [Concomitant]
     Active Substance: CALCIUM CARBONATE\CHOLECALCIFEROL
     Dosage: UNK  (1+1)
     Dates: start: 201707, end: 20181002
  4. ALENAT [Concomitant]
     Active Substance: ALENDRONATE SODIUM
     Dosage: 70 MILLIGRAM, QWK
     Dates: start: 201708
  5. KALCIPOS D [Concomitant]
     Active Substance: CALCIUM CARBONATE\CHOLECALCIFEROL
     Dosage: UNK  (1+1)
     Dates: start: 20181124
  6. ENBREL [Suspect]
     Active Substance: ETANERCEPT
     Indication: ANKYLOSING SPONDYLITIS
     Dosage: 50 MG, WEEKLY
     Route: 065
     Dates: start: 20180529, end: 20181003
  7. PEVARYL [Concomitant]
     Active Substance: ECONAZOLE NITRATE
     Dosage: 1 DOSAGE FORM, BID
     Dates: start: 201710, end: 20181002
  8. PEVARYL [ECONAZOLE] [Concomitant]
     Dosage: 1 DF, 2X/DAY
     Dates: start: 201710, end: 20181002
  9. ALVEDON [Concomitant]
     Active Substance: ACETAMINOPHEN
     Dosage: UNK UNK, AS NEEDED
     Dates: start: 201706

REACTIONS (14)
  - Throat irritation [Recovered/Resolved]
  - Abdominal pain lower [Not Recovered/Not Resolved]
  - Face oedema [Not Recovered/Not Resolved]
  - Rash erythematous [Recovered/Resolved]
  - Pharyngeal paraesthesia [Recovered/Resolved]
  - Peripheral swelling [Not Recovered/Not Resolved]
  - Paraesthesia [Recovered/Resolved]
  - Injection site pruritus [Recovered/Resolved]
  - Swollen tongue [Recovered/Resolved]
  - Flushing [Recovered/Resolved]
  - Injection site swelling [Recovered/Resolved]
  - Injection site rash [Recovered/Resolved]
  - Headache [Recovered/Resolved]
  - Abdominal distension [Not Recovered/Not Resolved]

NARRATIVE: CASE EVENT DATE: 20180619
